FAERS Safety Report 6750498-9 (Version None)
Quarter: 2010Q2

REPORT INFORMATION
  Report Type: 
  Country: None (occurrence: None)
  Receive Date: 20100601
  Receipt Date: 20100525
  Transmission Date: 20101027
  Serious: Yes (Hospitalization)
  Sender: FDA-Public Use
  Company Number: JP-ABBOTT-10P-087-0646782-00

PATIENT
  Sex: Female

DRUGS (4)
  1. KLARICID TAB [Suspect]
     Indication: SINUSITIS
     Route: 048
     Dates: start: 20100408, end: 20100415
  2. KETEK [Suspect]
     Indication: SINUSITIS
     Dosage: 600MG PER DAY
     Dates: start: 20100415
  3. MUCODYNE [Concomitant]
     Indication: SINUSITIS
     Dosage: 1500MG PER DAY
     Route: 048
     Dates: start: 20100408, end: 20100415
  4. LYZYME [Concomitant]
     Indication: SINUSITIS
     Dosage: 270MG PER DAY
     Route: 048
     Dates: start: 20100408, end: 20100415

REACTIONS (1)
  - PHOTOSENSITIVITY REACTION [None]
